FAERS Safety Report 5048939-0 (Version None)
Quarter: 2006Q3

REPORT INFORMATION
  Report Type: 
  Country: None (occurrence: None)
  Receive Date: 20060712
  Receipt Date: 20050908
  Transmission Date: 20061208
  Serious: No
  Sender: FDA-Public Use
  Company Number: US-GLAXOSMITHKLINE-A0573499A

PATIENT
  Age: 26 Year
  Sex: Female

DRUGS (8)
  1. IMITREX [Suspect]
     Indication: MIGRAINE
     Dosage: 50MG AS REQUIRED
     Route: 048
  2. ELAVIL [Concomitant]
  3. AMBIEN [Concomitant]
  4. KLONOPIN [Concomitant]
  5. BIRTH CONTROL PILL [Concomitant]
  6. PROZAC [Concomitant]
  7. EFFEXOR [Concomitant]
  8. ANTABUSE [Concomitant]

REACTIONS (1)
  - ALCOHOL INTOLERANCE [None]
